FAERS Safety Report 12784806 (Version 1)
Quarter: 2016Q3

REPORT INFORMATION
  Report Type: Spontaneous
  Country: NL (occurrence: NL)
  Receive Date: 20160927
  Receipt Date: 20160927
  Transmission Date: 20161109
  Serious: No
  Sender: FDA-Public Use
  Company Number: NL-TOLMAR, INC.-2015NL010988

PATIENT
  Sex: Male

DRUGS (3)
  1. ELIGARD [Suspect]
     Active Substance: LEUPROLIDE ACETATE
     Indication: PROSTATE CANCER
     Dosage: 45 MG, ONCE PER SIX MONTHS
     Route: 058
     Dates: start: 20120918
  2. ELIGARD [Suspect]
     Active Substance: LEUPROLIDE ACETATE
     Dosage: 45 MG, ONCE PER SIX MONTHS
     Route: 058
     Dates: start: 20140318
  3. ELIGARD [Suspect]
     Active Substance: LEUPROLIDE ACETATE
     Dosage: 45 MG, ONCE PER SIX MONTHS
     Route: 058
     Dates: start: 20150602

REACTIONS (8)
  - Diarrhoea [Unknown]
  - Pain in extremity [Unknown]
  - Hypersomnia [Unknown]
  - Weight decreased [Unknown]
  - Drug dose omission [Unknown]
  - Pollakiuria [Unknown]
  - Dizziness [Unknown]
  - Fatigue [Unknown]
